FAERS Safety Report 14638780 (Version 1)
Quarter: 2018Q1

REPORT INFORMATION
  Report Type: Spontaneous
  Country: FR (occurrence: FR)
  Receive Date: 20180315
  Receipt Date: 20180315
  Transmission Date: 20180509
  Serious: Yes (Hospitalization, Other)
  Sender: FDA-Public Use
  Company Number: FR-MERCK KGAA-2043748

PATIENT
  Age: 54 Year
  Sex: Female

DRUGS (3)
  1. LEVOTHYROX NF [Suspect]
     Active Substance: LEVOTHYROXINE SODIUM
     Dates: start: 20171122
  2. LEVOTHYROX NF [Suspect]
     Active Substance: LEVOTHYROXINE SODIUM
     Dates: start: 20171201
  3. NOVOTHYROX [Suspect]
     Active Substance: LEVOTHYROXINE SODIUM
     Indication: HYPOTHYROIDISM
     Dates: start: 2017

REACTIONS (33)
  - Cardiac septal hypertrophy [None]
  - Headache [None]
  - Blood thyroid stimulating hormone increased [None]
  - Chest discomfort [None]
  - Abdominal pain upper [None]
  - Presyncope [None]
  - Tri-iodothyronine free increased [None]
  - Mental impairment [None]
  - Bone pain [None]
  - Insomnia [None]
  - Irritability [None]
  - Amnesia [None]
  - Malaise [None]
  - Memory impairment [None]
  - Dizziness [Recovering/Resolving]
  - Arrhythmia [None]
  - Tremor [None]
  - Aggression [None]
  - Loss of personal independence in daily activities [None]
  - Social avoidant behaviour [None]
  - Anxiety [None]
  - Confusional state [None]
  - Panic attack [None]
  - Migraine [None]
  - Fatigue [None]
  - Eye irritation [None]
  - Stress [None]
  - Sleep disorder [None]
  - Muscle spasms [None]
  - Alopecia [None]
  - Fear of falling [None]
  - Atrial fibrillation [None]
  - Sense of oppression [None]

NARRATIVE: CASE EVENT DATE: 20171110
